FAERS Safety Report 9979117 (Version 1)
Quarter: 2014Q1

REPORT INFORMATION
  Report Type: Report from Study
  Country: US (occurrence: US)
  Receive Date: 20140306
  Receipt Date: 20140306
  Transmission Date: 20141002
  Serious: No
  Sender: FDA-Public Use
  Company Number: US-ABBVIE-13P-163-1173980-00

PATIENT
  Age: 69 Year
  Sex: Male
  Weight: 65.83 kg

DRUGS (2)
  1. HUMIRA [Suspect]
     Indication: CROHN^S DISEASE
     Dates: start: 20131114, end: 20131114
  2. HUMIRA [Suspect]

REACTIONS (1)
  - Weight decreased [Not Recovered/Not Resolved]
